FAERS Safety Report 4288504-6 (Version None)
Quarter: 2004Q1

REPORT INFORMATION
  Report Type: 
  Country: None (occurrence: None)
  Receive Date: 20040205
  Receipt Date: 20040115
  Transmission Date: 20041129
  Serious: Yes (Hospitalization)
  Sender: FDA-Public Use
  Company Number: EWC040137697

PATIENT
  Age: 17 Year
  Sex: Female

DRUGS (6)
  1. FLUOXETINE [Suspect]
     Indication: MAJOR DEPRESSION
     Dosage: 30 MG/DAY
     Dates: start: 20031219, end: 20040114
  2. OLANZAPINE [Concomitant]
  3. CLOZAPINE [Concomitant]
  4. BIPERIDEN HYDROCHLORIDE TAB [Concomitant]
  5. LACTITOL [Concomitant]
  6. ZOLPIDEM [Concomitant]

REACTIONS (25)
  - ABDOMINAL DISTENSION [None]
  - ABDOMINAL PAIN [None]
  - ASTHENIA [None]
  - BODY TEMPERATURE INCREASED [None]
  - BRADYPHRENIA [None]
  - C-REACTIVE PROTEIN INCREASED [None]
  - CONSTIPATION [None]
  - DIVERTICULITIS [None]
  - DIZZINESS [None]
  - DIZZINESS POSTURAL [None]
  - DRUG INTERACTION [None]
  - ENTERITIS [None]
  - FAECALOMA [None]
  - INFLAMMATION [None]
  - INTESTINAL HYPOMOTILITY [None]
  - LYMPH NODE PALPABLE [None]
  - OVERDOSE [None]
  - PHARYNGOLARYNGEAL PAIN [None]
  - POSTURE ABNORMAL [None]
  - SOMNOLENCE [None]
  - TACHYCARDIA [None]
  - TONGUE DISCOLOURATION [None]
  - TOXIC DILATATION OF COLON [None]
  - VOMITING [None]
  - WHITE BLOOD CELL COUNT INCREASED [None]
